FAERS Safety Report 6760570-5 (Version None)
Quarter: 2010Q2

REPORT INFORMATION
  Report Type: 
  Country: None (occurrence: None)
  Receive Date: 20100608
  Receipt Date: 20100527
  Transmission Date: 20101027
  Serious: Yes (Hospitalization)
  Sender: FDA-Public Use
  Company Number: FR-PFIZER INC-2010066543

PATIENT
  Age: 76 Year
  Sex: Female
  Weight: 70 kg

DRUGS (5)
  1. VFEND [Suspect]
     Indication: TRICHOSPORON INFECTION
     Dosage: 280 MG, 2X/DAY
     Route: 042
     Dates: start: 20100423, end: 20100429
  2. VFEND [Suspect]
     Dosage: 200 MG, 2X/DAY
     Route: 042
     Dates: start: 20100429, end: 20100502
  3. HEPARIN [Concomitant]
     Route: 042
  4. SECTRAL [Concomitant]
     Indication: ATRIAL FIBRILLATION
  5. LEVOTHYROXINE SODIUM [Concomitant]

REACTIONS (2)
  - AGGRESSION [None]
  - DISORIENTATION [None]
